FAERS Safety Report 23034074 (Version 2)
Quarter: 2023Q4

REPORT INFORMATION
  Report Type: Spontaneous
  Country: US (occurrence: US)
  Receive Date: 20231005
  Receipt Date: 20231016
  Transmission Date: 20240110
  Serious: Yes (Hospitalization, Other)
  Sender: FDA-Public Use
  Company Number: US-TEVA-2023-US-2930653

PATIENT
  Age: 85 Year
  Sex: Male

DRUGS (15)
  1. MEMANTINE [Suspect]
     Active Substance: MEMANTINE
     Indication: Dementia with Lewy bodies
     Dosage: 20 MILLIGRAM DAILY; RECEIVED AT HOME
     Route: 065
  2. RISPERIDONE [Suspect]
     Active Substance: RISPERIDONE
     Indication: Dementia with Lewy bodies
     Dosage: .5 MILLIGRAM DAILY; RECEIVED AT HOME
     Route: 065
  3. RISPERIDONE [Suspect]
     Active Substance: RISPERIDONE
     Dosage: 1 MILLIGRAM DAILY; RECEIVED AT HOSPITAL
     Route: 065
     Dates: start: 2021
  4. MELATONIN [Suspect]
     Active Substance: MELATONIN
     Indication: Insomnia
     Dosage: RECEIVED ON AN OUT-PATIENT BASIS
     Route: 065
  5. DIPHENHYDRAMINE [Suspect]
     Active Substance: DIPHENHYDRAMINE
     Indication: Insomnia
     Dosage: RECEIVED ON AN OUT-PATIENT BASIS
     Route: 065
  6. ADVAIR HFA [Concomitant]
     Active Substance: FLUTICASONE PROPIONATE\SALMETEROL XINAFOATE
     Indication: Asthma
     Dosage: 250-50 MICROGRAM TWICE A DAY
     Route: 065
  7. ALBUTEROL [Concomitant]
     Active Substance: ALBUTEROL
     Indication: Asthma
     Dosage: RECEIVED AS NEEDED
     Route: 055
  8. HYDROCHLOROTHIAZIDE [Concomitant]
     Active Substance: HYDROCHLOROTHIAZIDE
     Indication: Hypertension
     Dosage: 12.5 MILLIGRAM DAILY;
     Route: 065
  9. LOSARTAN [Concomitant]
     Active Substance: LOSARTAN
     Indication: Hypertension
     Dosage: 50 MILLIGRAM DAILY;
     Route: 065
  10. LEVOTHYROXINE [Concomitant]
     Active Substance: LEVOTHYROXINE
     Indication: Post procedural hypothyroidism
     Dosage: 100 MICROGRAM DAILY;
     Route: 065
  11. HALOPERIDOL [Concomitant]
     Active Substance: HALOPERIDOL
     Indication: Agitation
     Dosage: RECEIVED ON THE WAY TO HOSPITAL
     Route: 065
     Dates: start: 2021
  12. HALOPERIDOL [Concomitant]
     Active Substance: HALOPERIDOL
     Dosage: RECEIVED MULTIPLE DOSES AT THE HOSPITAL
     Route: 065
     Dates: start: 2021
  13. LORAZEPAM [Concomitant]
     Active Substance: LORAZEPAM
     Indication: Agitation
     Dosage: RECEIVED ON THE WAY TO HOSPITAL
     Route: 065
     Dates: start: 2021
  14. LORAZEPAM [Concomitant]
     Active Substance: LORAZEPAM
     Dosage: RECEIVED MULTIPLE DOSES AT THE HOSPITAL
     Route: 065
     Dates: start: 2021
  15. TRAZODONE [Concomitant]
     Active Substance: TRAZODONE HYDROCHLORIDE
     Indication: Insomnia
     Dosage: RECEIVED AT NIGHT
     Route: 065
     Dates: start: 2021

REACTIONS (5)
  - Agitation [Recovered/Resolved]
  - Hallucination [Recovered/Resolved]
  - Muscle rigidity [Recovered/Resolved]
  - Extrapyramidal disorder [Recovered/Resolved]
  - Drug ineffective [Unknown]

NARRATIVE: CASE EVENT DATE: 20210101
